FAERS Safety Report 9269268 (Version 1)
Quarter: 2013Q2

REPORT INFORMATION
  Report Type: Spontaneous
  Country: US (occurrence: US)
  Receive Date: 20130503
  Receipt Date: 20130503
  Transmission Date: 20140414
  Serious: No
  Sender: FDA-Public Use
  Company Number: US-PFIZER INC-2013132944

PATIENT
  Sex: Female

DRUGS (2)
  1. XELJANZ [Suspect]
     Dosage: UNK
  2. VICODIN [Suspect]
     Indication: PAIN
     Dosage: UNK

REACTIONS (13)
  - Sleep disorder [Unknown]
  - Neurological symptom [Unknown]
  - Asthenia [Unknown]
  - Dizziness [Unknown]
  - Fatigue [Unknown]
  - Arthralgia [Unknown]
  - Fall [Unknown]
  - Musculoskeletal pain [Unknown]
  - Lymphadenopathy [Unknown]
  - Malaise [Unknown]
  - Depressed mood [Unknown]
  - Memory impairment [Unknown]
  - Emotional disorder [Unknown]
